FAERS Safety Report 13617687 (Version 1)
Quarter: 2017Q2

REPORT INFORMATION
  Report Type: Spontaneous
  Country: US (occurrence: US)
  Receive Date: 20170606
  Receipt Date: 20170606
  Transmission Date: 20170830
  Serious: No
  Sender: FDA-Public Use
  Company Number: US-SA-2017SA009656

PATIENT
  Age: 57 Year
  Sex: Male

DRUGS (3)
  1. FENAMINE [Concomitant]
     Indication: WEIGHT DECREASED
  2. LANTUS SOLOSTAR [Suspect]
     Active Substance: INSULIN GLARGINE
     Indication: DIABETES MELLITUS
     Dosage: DOSE:45 UNIT(S)
     Route: 065
  3. SOLOSTAR [Concomitant]
     Active Substance: DEVICE
     Indication: DIABETES MELLITUS

REACTIONS (3)
  - Blood glucose abnormal [Unknown]
  - Intentional product misuse [Unknown]
  - Weight decreased [Unknown]
